FAERS Safety Report 10716562 (Version 1)
Quarter: 2015Q1

REPORT INFORMATION
  Report Type: Spontaneous
  Country: US (occurrence: None)
  Receive Date: 20150115
  Receipt Date: 20150115
  Transmission Date: 20150721
  Serious: Yes (Hospitalization)
  Sender: FDA-Public Use
  Company Number: None

PATIENT
  Age: 70 Year
  Sex: Female
  Weight: 69.5 kg

DRUGS (2)
  1. RITUXIMAB (MOAB C2B8 ANTI CD20, CHIMERIC) [Suspect]
     Active Substance: RITUXIMAB
     Dates: end: 20141007
  2. BENDAMUSTINE HYDROCHLORIDE [Suspect]
     Active Substance: BENDAMUSTINE HYDROCHLORIDE
     Dates: end: 20141009

REACTIONS (7)
  - Pulmonary oedema [None]
  - Lymph node palpable [None]
  - Febrile neutropenia [None]
  - Haemoglobin decreased [None]
  - Platelet count decreased [None]
  - Disease progression [None]
  - Cardiac failure congestive [None]

NARRATIVE: CASE EVENT DATE: 20141017
